FAERS Safety Report 4727212-1 (Version None)
Quarter: 2005Q3

REPORT INFORMATION
  Report Type: 
  Country: None (occurrence: None)
  Receive Date: 20050726
  Receipt Date: 20040517
  Transmission Date: 20060218
  Serious: Yes (Hospitalization)
  Sender: FDA-Public Use
  Company Number: 04LEB0111 154

PATIENT
  Sex: Female

DRUGS (6)
  1. INJ TIROFIBAN HCL (TIROFIBAN HYDROCHLORIDE) (INJECTION) [Suspect]
     Dates: start: 20030818
  2. AGGRASTAT [Suspect]
     Dosage: INTRAVENOUS
     Route: 042
     Dates: start: 20030818
  3. ASPIRIN [Concomitant]
  4. BISOPROLOL FUMARATE [Concomitant]
  5. CLOPIDOGREL BISULFATE [Concomitant]
  6. HEPARIN [Concomitant]

REACTIONS (1)
  - HAEMORRHAGE [None]
